FAERS Safety Report 5588618-4 (Version None)
Quarter: 2007Q4

REPORT INFORMATION
  Report Type: 
  Country: None (occurrence: None)
  Receive Date: 20071212
  Receipt Date: 20071015
  Transmission Date: 20080405
  Serious: No
  Sender: FDA-Public Use
  Company Number: 2007RL000458

PATIENT
  Age: 55 Year
  Sex: Female

DRUGS (8)
  1. LOVAZA [Suspect]
     Indication: BLOOD TRIGLYCERIDES INCREASED
     Dosage: 2 GM;QD;PO ; 4 GM;QD;PO
     Route: 048
     Dates: start: 20070501, end: 20070901
  2. LOVAZA [Suspect]
     Indication: BLOOD TRIGLYCERIDES INCREASED
     Dosage: 2 GM;QD;PO ; 4 GM;QD;PO
     Route: 048
     Dates: start: 20070901
  3. VITAMIN B [Concomitant]
     Indication: DRUG USE FOR UNKNOWN INDICATION
     Dosage: QD
  4. ALTACE [Concomitant]
  5. EFFEXOR [Concomitant]
  6. VITAMIN C /00008001/ [Concomitant]
  7. GLUCOSAMINE [Concomitant]
  8. CALCIUM [Concomitant]

REACTIONS (3)
  - HAIR COLOUR CHANGES [None]
  - HAIR TEXTURE ABNORMAL [None]
  - SELF-MEDICATION [None]
